FAERS Safety Report 15937620 (Version 1)
Quarter: 2019Q1

REPORT INFORMATION
  Report Type: Spontaneous
  Country: US (occurrence: US)
  Receive Date: 20190118
  Receipt Date: 20190118
  Transmission Date: 20190417
  Serious: Yes (Other)
  Sender: FDA-Public Use
  Company Number: None

PATIENT
  Age: 88 Year
  Sex: Female
  Weight: 55.79 kg

DRUGS (5)
  1. OMEPRAZOLE 40MG CAPSULES [Suspect]
     Active Substance: OMEPRAZOLE
     Indication: UPPER GASTROINTESTINAL HAEMORRHAGE
     Dosage: ?          QUANTITY:1 DF DOSAGE FORM;?
     Route: 048
     Dates: start: 20181018, end: 20181201
  2. FERROUS SULFATE. [Concomitant]
     Active Substance: FERROUS SULFATE
  3. LEVOTHYROXINE. [Concomitant]
     Active Substance: LEVOTHYROXINE
  4. MULTIMINERAL SUPPLEMENT [Concomitant]
  5. CENTRUM ADULT MULTIVITAMIN [Concomitant]

REACTIONS (3)
  - Back pain [None]
  - Neck pain [None]
  - Musculoskeletal pain [None]

NARRATIVE: CASE EVENT DATE: 20181201
